FAERS Safety Report 10924304 (Version 2)
Quarter: 2015Q1

REPORT INFORMATION
  Report Type: Report from Study
  Country: CA (occurrence: CA)
  Receive Date: 20150318
  Receipt Date: 20150319
  Transmission Date: 20150721
  Serious: Yes (Other)
  Sender: FDA-Public Use
  Company Number: CA-JNJFOC-20150308018

PATIENT
  Sex: Female
  Weight: 78 kg

DRUGS (5)
  1. REMICADE [Suspect]
     Active Substance: INFLIXIMAB
     Indication: RHEUMATOID ARTHRITIS
     Route: 042
     Dates: start: 20080219
  2. RISEDRONATE [Concomitant]
     Active Substance: RISEDRONATE SODIUM
     Route: 065
  3. PLAQUENIL [Concomitant]
     Active Substance: HYDROXYCHLOROQUINE SULFATE
     Route: 065
  4. NITRO [Concomitant]
     Active Substance: NITROGLYCERIN
     Route: 065
  5. SYNTHROID [Concomitant]
     Active Substance: LEVOTHYROXINE SODIUM
     Route: 065

REACTIONS (1)
  - Breast cyst [Not Recovered/Not Resolved]
